FAERS Safety Report 16105087 (Version 1)
Quarter: 2019Q2

REPORT INFORMATION
  Report Type: Spontaneous
  Country: US (occurrence: US)
  Receive Date: 20190321
  Receipt Date: 20190321
  Transmission Date: 20190711
  Serious: Yes (Life-Threatening, Other)
  Sender: FDA-Public Use
  Company Number: None

PATIENT
  Age: 38 Year
  Sex: Female
  Weight: 126 kg

DRUGS (9)
  1. WOMENS DAILY VITAMIN [Concomitant]
  2. POTASSIUM [Concomitant]
     Active Substance: POTASSIUM
  3. AJOVY [Suspect]
     Active Substance: FREMANEZUMAB-VFRM
     Indication: MIGRAINE
     Dosage: ?          QUANTITY:1 INJECTION;OTHER FREQUENCY:ONCE A MONTH;OTHER ROUTE:INJECTED INTO THIGH, ARM OR STOMACH?
     Dates: start: 20190316
  4. BIOTIN [Concomitant]
     Active Substance: BIOTIN
  5. PROBIOTIC [Concomitant]
     Active Substance: PROBIOTICS NOS
  6. CHLORTHALDINE 25MG [Concomitant]
  7. OMPEREZOLE 20MG [Concomitant]
  8. HUMALOG- INSULIN PUMO [Concomitant]
  9. VITAMIN D NOS [Concomitant]
     Active Substance: VITAMIN D NOS

REACTIONS (1)
  - Blood glucose decreased [None]

NARRATIVE: CASE EVENT DATE: 20190316
